FAERS Safety Report 6988127-1 (Version None)
Quarter: 2010Q3

REPORT INFORMATION
  Report Type: 
  Country: None (occurrence: None)
  Receive Date: 20100916
  Receipt Date: 20100914
  Transmission Date: 20110219
  Serious: Yes (Hospitalization)
  Sender: FDA-Public Use
  Company Number: B0674484A

PATIENT
  Sex: Female

DRUGS (1)
  1. AUGMENTIN '125' [Suspect]
     Indication: TOOTH DISORDER
     Dosage: 500MG SINGLE DOSE
     Route: 048
     Dates: start: 20100520, end: 20100520

REACTIONS (8)
  - ANAPHYLACTIC SHOCK [None]
  - ERYTHEMA [None]
  - HYPERHIDROSIS [None]
  - HYPOTENSION [None]
  - LARYNGEAL DISORDER [None]
  - PAINFUL RESPIRATION [None]
  - PALATAL OEDEMA [None]
  - RALES [None]
